FAERS Safety Report 9512116 (Version 1)
Quarter: 2013Q1

REPORT INFORMATION
  Report Type: Spontaneous
  Country: US (occurrence: None)
  Receive Date: 20130305
  Receipt Date: 20130305
  Transmission Date: 20140127
  Serious: Yes (Hospitalization)
  Sender: FDA-Public Use
  Company Number: 163-21880-11114039

PATIENT
  Age: 52 Year
  Sex: Male
  Weight: 89.36 kg

DRUGS (18)
  1. REVLIMID [Suspect]
     Indication: PLASMA CELL MYELOMA
     Dosage: 25 MG, 1 IN 1 D, PO
     Route: 048
     Dates: start: 201101, end: 2011
  2. CARVEDILOL [Suspect]
     Indication: PRODUCT USED FOR UNKNOWN INDICATION
  3. ZOMETA (ZOLEDRONIC ACID) (UNKNOWN) [Concomitant]
  4. ADVAIR (SERETIDE MITE) (INHALANT) [Concomitant]
  5. HYDROCOLDONE (HYDROCODONE) (TABLETS) [Concomitant]
  6. BUMEX (BUMETANIDE) (TABLETS0 [Concomitant]
  7. SPIRIVA (TIOTROPIUM BROMIDE) (INHALANT) [Concomitant]
  8. ALBUTEROL (SALBUTAMOL) (INHALANT) [Concomitant]
  9. PULMICORT (BUDESONIDE) (INHALANT) [Concomitant]
  10. COREG (CARVEDILOL) (TABLETS) [Concomitant]
  11. PERCOCET (OXYCOCET) (UNKNOWN) [Concomitant]
  12. KLONOPIN (CLONAZEPAM) (UNKNOWN) [Concomitant]
  13. SINGULAIR [Concomitant]
  14. ASPIRIN (ACETYLSALICYLIC ACID) (UNKNOWN) (ACETYLSALICYLIC ACID) [Concomitant]
  15. VITAMIN D (ERGOCALCIFEROL) (UNKNOWN) [Concomitant]
  16. VENTOLIN (SALBUTAMOL) (UNKNOWN) [Concomitant]
  17. VELCADE (BORTEZOMIB) [Concomitant]
  18. DECADRON (DEXAMETHASONE) [Concomitant]

REACTIONS (3)
  - Pneumonia [None]
  - Rash [None]
  - Diarrhoea [None]
